FAERS Safety Report 15688005 (Version 1)
Quarter: 2018Q4

REPORT INFORMATION
  Report Type: Report from Study
  Country: US (occurrence: US)
  Receive Date: 20181205
  Receipt Date: 20181205
  Transmission Date: 20190205
  Serious: Yes (Other)
  Sender: FDA-Public Use
  Company Number: US-ROCHE-2222517

PATIENT
  Age: 58 Year
  Sex: Female
  Weight: 74.91 kg

DRUGS (1)
  1. OCREVUS [Suspect]
     Active Substance: OCRELIZUMAB
     Indication: RELAPSING MULTIPLE SCLEROSIS
     Dosage: ONGOING: NO
     Route: 065
     Dates: start: 20180309

REACTIONS (3)
  - Migraine [Recovered/Resolved]
  - Pneumonia [Not Recovered/Not Resolved]
  - Genital ulceration [Recovered/Resolved]

NARRATIVE: CASE EVENT DATE: 20181127
